FAERS Safety Report 5677553-9 (Version None)
Quarter: 2008Q1

REPORT INFORMATION
  Report Type: 
  Country: None (occurrence: None)
  Receive Date: 20080318
  Receipt Date: 20080305
  Transmission Date: 20080703
  Serious: Yes (Other)
  Sender: FDA-Public Use
  Company Number: DSU-2008-00346

PATIENT
  Sex: Male
  Weight: 92 kg

DRUGS (4)
  1. COLESEVELAM (COLESEVELAM) (625 MILLIGRAM, TABLET) (COLESEVELAM) [Suspect]
     Indication: HYPERCHOLESTEROLAEMIA
     Dosage: 1875 MG (625 MG, TID), PER ORAL
     Route: 048
     Dates: start: 20071101, end: 20071201
  2. EZETIMIBE [Concomitant]
  3. RAMIPRIL [Concomitant]
  4. ROSUVASTATIN (ROSUVASTATIN) [Concomitant]

REACTIONS (3)
  - ABDOMINAL PAIN [None]
  - DIARRHOEA [None]
  - NAUSEA [None]
